FAERS Safety Report 6160300-4 (Version None)
Quarter: 2009Q2

REPORT INFORMATION
  Report Type: 
  Country: None (occurrence: None)
  Receive Date: 20090420
  Receipt Date: 20090408
  Transmission Date: 20091009
  Serious: Yes (Hospitalization)
  Sender: FDA-Public Use
  Company Number: JP-NOVOPROD-285858

PATIENT
  Age: 14 Year
  Sex: Female
  Weight: 43 kg

DRUGS (2)
  1. NORDITROPIN NORDIFLEX [Suspect]
     Indication: GROWTH HORMONE DEFICIENCY
     Dosage: 1.2 MG, QD
     Route: 058
     Dates: start: 20061025, end: 20090324
  2. PROMAC                             /01312301/ [Concomitant]
     Indication: ZINC DEFICIENCY
     Route: 048
     Dates: start: 20080611, end: 20090324

REACTIONS (1)
  - OSTEONECROSIS [None]
